FAERS Safety Report 19292963 (Version 4)
Quarter: 2023Q1

REPORT INFORMATION
  Report Type: Report from Study
  Country: US (occurrence: US)
  Receive Date: 20210524
  Receipt Date: 20230111
  Transmission Date: 20230418
  Serious: No
  Sender: FDA-Public Use
  Company Number: US-SA-2017SA066871

PATIENT
  Age: 85 Year
  Sex: Female

DRUGS (5)
  1. VANDETANIB [Suspect]
     Active Substance: VANDETANIB
     Indication: Thyroid cancer
     Dosage: 100 MG, QD
     Dates: start: 20161110
  2. VANDETANIB [Suspect]
     Active Substance: VANDETANIB
     Dosage: 300 MG, QOD
     Route: 048
     Dates: start: 20161110
  3. VANDETANIB [Suspect]
     Active Substance: VANDETANIB
     Dosage: 200 MG, QOD
     Route: 048
  4. IMODIUM [Concomitant]
     Active Substance: LOPERAMIDE HYDROCHLORIDE
     Indication: Diarrhoea
     Dosage: UNK
     Route: 065
  5. MAGNESIUM SULFATE [Concomitant]
     Active Substance: MAGNESIUM SULFATE
     Dosage: UNK
     Route: 065

REACTIONS (8)
  - Blood magnesium decreased [Unknown]
  - Neoplasm [Unknown]
  - Pollakiuria [Not Recovered/Not Resolved]
  - Tremor [Unknown]
  - Diarrhoea [Unknown]
  - Asthenia [Unknown]
  - Dry skin [Not Recovered/Not Resolved]
  - Product dose omission in error [Unknown]
